FAERS Safety Report 5737139-4 (Version None)
Quarter: 2008Q2

REPORT INFORMATION
  Report Type: 
  Country: None (occurrence: None)
  Receive Date: 20080514
  Receipt Date: 20080506
  Transmission Date: 20081010
  Serious: Yes (Death)
  Sender: FDA-Public Use
  Company Number: US-ASTRAZENECA-2008UW07929

PATIENT
  Age: 39 Year
  Sex: Female

DRUGS (12)
  1. SEROQUEL [Suspect]
     Indication: BIPOLAR DISORDER
     Dosage: 300-600 MG
     Route: 048
  2. SEROQUEL [Suspect]
     Indication: AFFECTIVE DISORDER
     Dosage: 300-600 MG
     Route: 048
  3. SEROQUEL [Suspect]
     Route: 048
  4. SEROQUEL [Suspect]
     Route: 048
  5. SEROQUEL [Suspect]
     Route: 048
  6. SEROQUEL [Suspect]
     Route: 048
  7. KLONOPIN [Concomitant]
     Indication: ANXIETY
  8. LAMICTAL [Concomitant]
     Indication: DEPRESSION
     Route: 048
  9. LEXAPRO [Concomitant]
     Indication: ANXIETY
     Route: 048
  10. LEXAPRO [Concomitant]
     Indication: DEPRESSION
     Route: 048
  11. BENTYL [Concomitant]
  12. ULTRAM [Concomitant]

REACTIONS (3)
  - COMPLETED SUICIDE [None]
  - INTENTIONAL OVERDOSE [None]
  - WEIGHT INCREASED [None]
